FAERS Safety Report 23031993 (Version 1)
Quarter: 2023Q4

REPORT INFORMATION
  Report Type: Spontaneous
  Country: CN (occurrence: CN)
  Receive Date: 20231005
  Receipt Date: 20231005
  Transmission Date: 20240110
  Serious: Yes (Disabling, Other)
  Sender: FDA-Public Use
  Company Number: None

PATIENT
  Age: 49 Year
  Sex: Female
  Weight: 69 kg

DRUGS (4)
  1. CYCLOPHOSPHAMIDE [Suspect]
     Active Substance: CYCLOPHOSPHAMIDE
     Indication: Breast cancer
     Dosage: 1G, ONE TIME IN ONE DAY DILUTED IN 100 ML 0.9% SODIUM CHLORIDE, DOSAGE FORM: POWDER INJECTION
     Route: 041
     Dates: start: 20230908, end: 20230908
  2. SODIUM CHLORIDE [Suspect]
     Active Substance: SODIUM CHLORIDE
     Indication: Vehicle solution use
     Dosage: 250 ML (0.9% INJECTION), ONE TIME IN ONE DAY, DILUTED IN 130 MG DOCETAXEL
     Route: 041
     Dates: start: 20230908, end: 20230908
  3. SODIUM CHLORIDE [Suspect]
     Active Substance: SODIUM CHLORIDE
     Dosage: 100 ML (0.9% INJECTION), ONE TIME IN ONE DAY, DILUTED IN 1 G CYCLOPHOSPHAMIDE
     Route: 041
     Dates: start: 20230908, end: 20230908
  4. DOCETAXEL [Suspect]
     Active Substance: DOCETAXEL
     Indication: Breast cancer
     Dosage: 130 MG ONE TIME IN ONE DAY DILUTED IN 250 ML 0.9% SODIUM CHLORIDE
     Route: 041
     Dates: start: 20230908, end: 20230908

REACTIONS (1)
  - Myelosuppression [Not Recovered/Not Resolved]

NARRATIVE: CASE EVENT DATE: 20230911
